FAERS Safety Report 8188761-X (Version None)
Quarter: 2012Q1

REPORT INFORMATION
  Report Type: 
  Country: None (occurrence: None)
  Receive Date: 20120306
  Receipt Date: 20120223
  Transmission Date: 20120608
  Serious: Yes (Death, Congenital Anomaly)
  Sender: FDA-Public Use
  Company Number: DK-FRI-1000026020

PATIENT
  Sex: Female
  Weight: 0.1 kg

DRUGS (1)
  1. CITALOPRAM HYDROBROMIDE [Suspect]
     Dosage: 30 MG
     Route: 064
     Dates: end: 20030730

REACTIONS (3)
  - ANENCEPHALY [None]
  - FOETAL EXPOSURE DURING PREGNANCY [None]
  - MATERNAL DRUGS AFFECTING FOETUS [None]
